FAERS Safety Report 4333861-5 (Version None)
Quarter: 2004Q2

REPORT INFORMATION
  Report Type: 
  Country: None (occurrence: None)
  Receive Date: 20040402
  Receipt Date: 20040315
  Transmission Date: 20050107
  Serious: Yes (Death, Hospitalization, Other)
  Sender: FDA-Public Use
  Company Number: 04-078-0596

PATIENT
  Age: 22 Year
  Sex: Female
  Weight: 55 kg

DRUGS (2)
  1. ETOPOSIDE [Suspect]
     Indication: ADENOCARCINOMA
     Dosage: 78.5 MG IV
     Route: 042
     Dates: start: 20030306, end: 20030308
  2. ETOPOSIDE [Suspect]
     Indication: METASTATIC NEOPLASM
     Dosage: 78.5 MG IV
     Route: 042
     Dates: start: 20030306, end: 20030308

REACTIONS (3)
  - CLOSTRIDIUM COLITIS [None]
  - MALIGNANT NEOPLASM PROGRESSION [None]
  - NEUTROPENIA [None]
